FAERS Safety Report 8263004-7 (Version None)
Quarter: 2012Q2

REPORT INFORMATION
  Report Type: 
  Country: None (occurrence: None)
  Receive Date: 20120405
  Receipt Date: 20120329
  Transmission Date: 20120825
  Serious: Yes (Hospitalization)
  Sender: FDA-Public Use
  Company Number: US-BAYER-2012-002805

PATIENT
  Age: 31 Year
  Sex: Female
  Weight: 99.773 kg

DRUGS (4)
  1. YAZ [Suspect]
     Indication: POLYCYSTIC OVARIES
     Dosage: UNK UNK, QD
     Dates: start: 20060601, end: 20111003
  2. DROSPIRENONE AND ETHINYL ESTRADIOL [Suspect]
     Indication: POLYCYSTIC OVARIES
     Dosage: UNK UNK, QD
     Route: 048
     Dates: start: 20060601, end: 20111003
  3. CHANTIX [Concomitant]
     Dosage: 1 MG, UNK
     Route: 048
  4. NEXIUM [Concomitant]
     Dosage: 40 MG, UNK
     Route: 048

REACTIONS (11)
  - ANXIETY [None]
  - CHOLELITHIASIS [None]
  - NON-CARDIAC CHEST PAIN [None]
  - ABDOMINAL PAIN UPPER [None]
  - EMOTIONAL DISTRESS [None]
  - PSYCHOLOGICAL TRAUMA [None]
  - VOMITING [None]
  - HAEMATEMESIS [None]
  - CHOLECYSTITIS CHRONIC [None]
  - MUSCULOSKELETAL CHEST PAIN [None]
  - DIARRHOEA [None]
